FAERS Safety Report 5698362-0 (Version None)
Quarter: 2008Q2

REPORT INFORMATION
  Report Type: 
  Country: None (occurrence: None)
  Receive Date: 20080403
  Receipt Date: 20080326
  Transmission Date: 20081010
  Serious: Yes (Death, Other)
  Sender: FDA-Public Use
  Company Number: GXKR2008FR02388

PATIENT
  Age: 77 Year
  Sex: Female

DRUGS (7)
  1. DOXORUBICIN HCL [Suspect]
     Indication: B-CELL LYMPHOMA
     Dosage: 6 CYCLES
  2. VINCRISTINE [Suspect]
     Indication: B-CELL LYMPHOMA
     Dosage: 6 CYCLES
  3. PREDNISONE [Suspect]
     Indication: B-CELL LYMPHOMA
     Dosage: 6 CYCLES
  4. CYCLOPHOSPHAMIDE [Suspect]
     Indication: B-CELL LYMPHOMA
     Dosage: 6 CYCLES
  5. RITUXAN [Suspect]
     Indication: B-CELL LYMPHOMA
     Dosage: 2 CYCLES
     Dates: end: 20050608
  6. VALACYCLOVIR [Concomitant]
  7. BACTRIM [Concomitant]

REACTIONS (7)
  - CONVULSION [None]
  - DIALYSIS [None]
  - HEPATIC ENCEPHALOPATHY [None]
  - HEPATIC FAILURE [None]
  - HEPATITIS B [None]
  - ORAL HERPES [None]
  - URINARY TRACT INFECTION [None]
